FAERS Safety Report 14252631 (Version 21)
Quarter: 2025Q3

REPORT INFORMATION
  Report Type: Spontaneous
  Country: US (occurrence: US)
  Receive Date: 20171205
  Receipt Date: 20250708
  Transmission Date: 20251021
  Serious: Yes (Other)
  Sender: PFIZER
  Company Number: US-PFIZER INC-2017273574

PATIENT
  Age: 67 Year
  Sex: Female
  Weight: 72 kg

DRUGS (14)
  1. XELJANZ XR [Suspect]
     Active Substance: TOFACITINIB CITRATE
     Indication: Rheumatoid arthritis
     Dosage: 11 MG, 1X/DAY
     Dates: start: 20161223
  2. XELJANZ XR [Suspect]
     Active Substance: TOFACITINIB CITRATE
     Indication: Osteoarthritis
     Dosage: 11 MG, 1X/DAY
     Route: 048
     Dates: start: 201701, end: 2017
  3. XELJANZ XR [Suspect]
     Active Substance: TOFACITINIB CITRATE
     Dosage: 11 MG, 1X/DAY
     Route: 048
     Dates: start: 2018
  4. XELJANZ XR [Suspect]
     Active Substance: TOFACITINIB CITRATE
     Dosage: 11 MG, 1X/DAY
     Route: 048
  5. CELECOXIB [Concomitant]
     Active Substance: CELECOXIB
  6. ETODOLAC [Concomitant]
     Active Substance: ETODOLAC
     Dosage: 400 MG, 2X/DAY
  7. IRON [Concomitant]
     Active Substance: IRON
     Indication: Blood disorder
     Dosage: 27 MG, 1X/DAY
  8. LASIX [Concomitant]
     Active Substance: FUROSEMIDE
     Indication: Oedema peripheral
     Dates: start: 2014
  9. METHOTREXATE [Concomitant]
     Active Substance: METHOTREXATE
     Dosage: 6 TABLETS A WEEK WITH FOOD.
  10. METHYLPREDNISOLONE [Concomitant]
     Active Substance: METHYLPREDNISOLONE
  11. PREDNISONE [Concomitant]
     Active Substance: PREDNISONE
  12. VITAMIN B COMPLEX WITH VITAMIN C + FOLIC ACID [Concomitant]
     Indication: Supplementation therapy
     Dosage: UNK, 1X/DAY
  13. VITAMIN D [Concomitant]
     Active Substance: VITAMIN D NOS
     Indication: Supplementation therapy
     Dosage: 1000 IU, 1X/DAY
  14. VITAMIN E [Concomitant]
     Active Substance: .ALPHA.-TOCOPHEROL
     Indication: Supplementation therapy
     Dosage: 500 MG, 1X/DAY

REACTIONS (10)
  - Urinary tract infection [Not Recovered/Not Resolved]
  - Condition aggravated [Not Recovered/Not Resolved]
  - Rotator cuff repair [Not Recovered/Not Resolved]
  - Spinal operation [Not Recovered/Not Resolved]
  - Shoulder operation [Unknown]
  - Limb operation [Unknown]
  - Joint effusion [Unknown]
  - Hepatic steatosis [Unknown]
  - Peripheral swelling [Unknown]
  - Cardiac disorder [Unknown]

NARRATIVE: CASE EVENT DATE: 20180101
